FAERS Safety Report 14874804 (Version 1)
Quarter: 2018Q2

REPORT INFORMATION
  Report Type: Spontaneous
  Country: FR (occurrence: FR)
  Receive Date: 20180510
  Receipt Date: 20180510
  Transmission Date: 20180711
  Serious: Yes (Hospitalization)
  Sender: FDA-Public Use
  Company Number: FR-IPSEN BIOPHARMACEUTICALS, INC.-2018-06373

PATIENT
  Age: 11 Year
  Sex: Male
  Weight: 23 kg

DRUGS (5)
  1. SOMATROPIN NOS [Suspect]
     Active Substance: SOMATROPIN
     Route: 065
  2. INCRELEX [Concomitant]
     Active Substance: MECASERMIN
     Dates: start: 2014
  3. INCRELEX [Concomitant]
     Active Substance: MECASERMIN
     Indication: PRIMARY INSULIN LIKE GROWTH FACTOR-1 DEFICIENCY
     Dates: start: 20140424, end: 2014
  4. ASPEGIC [Concomitant]
     Active Substance: ASPIRIN DL-LYSINE
  5. SOMATROPIN NOS [Suspect]
     Active Substance: SOMATROPIN
     Indication: PRODUCT USED FOR UNKNOWN INDICATION
     Route: 065

REACTIONS (1)
  - Aural polyp [Recovered/Resolved]

NARRATIVE: CASE EVENT DATE: 20140515
